FAERS Safety Report 16150194 (Version 1)
Quarter: 2019Q2

REPORT INFORMATION
  Report Type: Spontaneous
  Country: US (occurrence: US)
  Receive Date: 20190402
  Receipt Date: 20190402
  Transmission Date: 20190711
  Serious: No
  Sender: FDA-Public Use
  Company Number: US-MYLANLABS-2019M1024072

PATIENT
  Age: 68 Year
  Sex: Male
  Weight: 93 kg

DRUGS (4)
  1. DEPAKOTE [Suspect]
     Active Substance: DIVALPROEX SODIUM
     Indication: PRODUCT USED FOR UNKNOWN INDICATION
  2. SEROQUEL [Interacting]
     Active Substance: QUETIAPINE FUMARATE
     Indication: PRODUCT USED FOR UNKNOWN INDICATION
     Dosage: UNK (15-20 MG FOR 15 YEARS)
  3. LITHIUM. [Suspect]
     Active Substance: LITHIUM
     Dosage: 150 MILLIGRAM, QD
     Route: 048
  4. LATUDA [Interacting]
     Active Substance: LURASIDONE HYDROCHLORIDE
     Indication: AFFECTIVE DISORDER
     Dosage: 20 MILLIGRAM (FOR A WHILE)
     Route: 048
     Dates: end: 20190121

REACTIONS (7)
  - Insomnia [Not Recovered/Not Resolved]
  - Drug interaction [Unknown]
  - Trismus [Not Recovered/Not Resolved]
  - Psychomotor hyperactivity [Not Recovered/Not Resolved]
  - Tardive dyskinesia [Not Recovered/Not Resolved]
  - Stress [Unknown]
  - Off label use [Unknown]

NARRATIVE: CASE EVENT DATE: 201901
